FAERS Safety Report 5173412-9 (Version None)
Quarter: 2006Q4

REPORT INFORMATION
  Report Type: 
  Country: None (occurrence: None)
  Receive Date: 20061206
  Receipt Date: 20061127
  Transmission Date: 20070319
  Serious: Yes (Other)
  Sender: FDA-Public Use
  Company Number: 2006BI017247

PATIENT
  Age: 53 Year
  Sex: Female
  Weight: 97.0698 kg

DRUGS (3)
  1. AVONEX [Suspect]
     Indication: MULTIPLE SCLEROSIS
     Dosage: 30 UG;QW;IM
     Route: 030
     Dates: start: 20020101, end: 20030101
  2. AVONEX [Suspect]
     Indication: MULTIPLE SCLEROSIS
     Dosage: 30 UG;QW;IM
     Route: 030
     Dates: start: 20030101
  3. SYNTHROID [Concomitant]

REACTIONS (6)
  - FALL [None]
  - MEMORY IMPAIRMENT [None]
  - PARAESTHESIA [None]
  - RECURRENT CANCER [None]
  - SENSORY DISTURBANCE [None]
  - THYROID CANCER [None]
